FAERS Safety Report 10085047 (Version 1)
Quarter: 2014Q2

REPORT INFORMATION
  Report Type: Spontaneous
  Country: ES (occurrence: ES)
  Receive Date: 20140417
  Receipt Date: 20140417
  Transmission Date: 20141212
  Serious: Yes (Other)
  Sender: FDA-Public Use
  Company Number: ES-WATSON-2014-07406

PATIENT
  Age: 71 Year
  Sex: Male

DRUGS (4)
  1. LEVOFLOXACIN (UNKNOWN) [Suspect]
     Indication: PYREXIA
     Dosage: UNK
     Route: 065
  2. LEVOFLOXACIN (UNKNOWN) [Suspect]
     Indication: PAIN
  3. RIFAMPICIN [Concomitant]
     Indication: PAIN
     Dosage: UNK
     Route: 065
  4. RIFAMPICIN [Concomitant]
     Indication: PYREXIA

REACTIONS (1)
  - Pigmentation disorder [Recovered/Resolved with Sequelae]
